FAERS Safety Report 12522134 (Version 1)
Quarter: 2016Q3

REPORT INFORMATION
  Report Type: Spontaneous
  Country: IL (occurrence: IL)
  Receive Date: 20160701
  Receipt Date: 20160701
  Transmission Date: 20161109
  Serious: Yes (Other)
  Sender: FDA-Public Use
  Company Number: IL-IGI LABORATORIES, INC.-1054517

PATIENT
  Age: 84 Year
  Sex: Male

DRUGS (5)
  1. SIMOVIL [Concomitant]
     Route: 065
  2. LOSEC [Concomitant]
     Active Substance: OMEPRAZOLE
     Route: 065
  3. ZANTAC [Suspect]
     Active Substance: RANITIDINE HYDROCHLORIDE
     Indication: PRODUCT USED FOR UNKNOWN INDICATION
     Route: 065
  4. ENALADEX [Suspect]
     Active Substance: ENALAPRIL MALEATE
     Route: 065
  5. ASPIRIN. [Concomitant]
     Active Substance: ASPIRIN
     Route: 065

REACTIONS (5)
  - Wheezing [Unknown]
  - Hypertension [Recovering/Resolving]
  - Asphyxia [Unknown]
  - Pyrexia [Recovering/Resolving]
  - Anaphylactic shock [Unknown]
